FAERS Safety Report 6902258-3 (Version None)
Quarter: 2010Q3

REPORT INFORMATION
  Report Type: 
  Country: None (occurrence: None)
  Receive Date: 20100803
  Receipt Date: 20080505
  Transmission Date: 20110219
  Serious: No
  Sender: FDA-Public Use
  Company Number: US-PFIZER INC-2008030146

PATIENT
  Sex: Female
  Weight: 75 kg

DRUGS (14)
  1. LYRICA [Suspect]
     Indication: BACK PAIN
     Dates: start: 20080201
  2. MONTELUKAST SODIUM [Concomitant]
  3. SYNTHROID [Concomitant]
  4. ACCUPRIL [Concomitant]
  5. COENZYME Q10 [Concomitant]
  6. HYDROCHLOROTHIAZIDE [Concomitant]
  7. NIFEDIPINE [Concomitant]
  8. DETROL [Concomitant]
  9. COUMADIN [Concomitant]
  10. FOLGARD [Concomitant]
  11. ATENOLOL [Concomitant]
  12. ALL OTHER THERAPEUTIC PRODUCTS [Concomitant]
  13. COLACE [Concomitant]
  14. NASONEX [Concomitant]

REACTIONS (4)
  - DRUG INEFFECTIVE [None]
  - DRY EYE [None]
  - VISION BLURRED [None]
  - VISUAL ACUITY REDUCED [None]
